FAERS Safety Report 8950446 (Version 1)
Quarter: 2012Q4

REPORT INFORMATION
  Report Type: 
  Country: US (occurrence: US)
  Receive Date: 20121207
  Receipt Date: 20121207
  Transmission Date: 20130627
  Serious: Yes (Other)
  Sender: FDA-Public Use
  Company Number: US-BAYER-2012-126464

PATIENT

DRUGS (1)
  1. STIVARGA [Suspect]

REACTIONS (2)
  - Myocardial infarction [None]
  - Hospice care [None]
